FAERS Safety Report 9639266 (Version 4)
Quarter: 2014Q1

REPORT INFORMATION
  Report Type: Spontaneous
  Country: US (occurrence: US)
  Receive Date: 20131022
  Receipt Date: 20140301
  Transmission Date: 20141002
  Serious: Yes (Life-Threatening, Hospitalization)
  Sender: FDA-Public Use
  Company Number: US-ROCHE-GNE278281

PATIENT
  Age: 62 Year
  Sex: Male
  Weight: 172.18 kg

DRUGS (20)
  1. OMALIZUMAB [Suspect]
     Indication: ASTHMA
     Dosage: 300 MG, Q2W, EVENT OCCURED AT DOSE OF 47
     Route: 058
     Dates: start: 20060823, end: 20090226
  2. AVELOX [Suspect]
     Indication: PRODUCT USED FOR UNKNOWN INDICATION
     Dosage: UNK MG, QD
     Route: 065
  3. ADVAIR [Concomitant]
     Indication: ASTHMA
     Dosage: 50 MCG, BID
     Route: 050
     Dates: start: 20050407
  4. ADVAIR [Concomitant]
     Dosage: 500 MCG, QAM
     Route: 050
  5. SINGULAIR [Concomitant]
     Indication: ASTHMA
     Dosage: 10 MG, QD
     Route: 048
     Dates: start: 20050407
  6. ALBUTEROL [Concomitant]
     Indication: ASTHMA
     Dosage: EVERY 4-6  HOURS AS PER NEED
     Route: 050
     Dates: start: 20050407
  7. SPIRIVA [Concomitant]
     Indication: ASTHMA
     Dosage: 18 MCG, QD, 1 CAPSUL PER DAY
     Route: 050
     Dates: start: 20050407
  8. FLONASE [Concomitant]
     Indication: ASTHMA
     Dosage: UNK
     Route: 065
     Dates: start: 20050407
  9. NASONEX [Concomitant]
     Indication: HYPERSENSITIVITY
     Dosage: 50 MCG, QD
     Route: 045
     Dates: start: 20050407
  10. ASTELIN [Concomitant]
     Indication: HYPERSENSITIVITY
     Dosage: 137 MCG, BID
     Route: 045
     Dates: start: 20050407
  11. ZYRTEC [Concomitant]
     Indication: HYPERSENSITIVITY
     Dosage: 10 MG, UNK
     Route: 048
     Dates: start: 20050407
  12. PREDNISONE [Concomitant]
     Indication: ASTHMA
     Dosage: 20 MG, UNK
     Route: 048
     Dates: start: 20050407
  13. PREDNISONE [Concomitant]
     Indication: HYPERSENSITIVITY
     Dosage: 1 TABLET, BID, DOSE=1 TABLET, DAILY DOSE=2 TABLET, TOTAL DOSE=12 TABLET
     Route: 065
     Dates: start: 20090209, end: 20090214
  14. PREDNISONE [Concomitant]
     Dosage: 20 MG, BID
     Route: 048
     Dates: start: 20100212, end: 20100218
  15. AUGMENTIN [Concomitant]
     Indication: PRODUCT USED FOR UNKNOWN INDICATION
     Dosage: 125 MG, BID
     Route: 065
  16. EPIPEN [Concomitant]
     Indication: HYPERSENSITIVITY
     Dosage: UNK
     Route: 065
     Dates: start: 20050407
  17. PROVENTIL [Concomitant]
     Indication: ASTHMA
     Dosage: UNK
     Route: 065
     Dates: start: 20050407
  18. BENICAR [Concomitant]
     Indication: HYPERTENSION
     Dosage: 40 MG, QAM
     Route: 048
  19. ASPIRIN [Concomitant]
     Indication: PROPHYLAXIS
     Dosage: 81 MG, QD
     Route: 048
  20. POY SIAN [Concomitant]
     Indication: ASTHMA
     Dosage: UNK
     Route: 050

REACTIONS (4)
  - Anaphylactic reaction [Recovered/Resolved]
  - Pruritus [Unknown]
  - Flushing [Unknown]
  - Respiratory distress [Unknown]
